FAERS Safety Report 20961424 (Version 11)
Quarter: 2022Q3

REPORT INFORMATION
  Report Type: Report from Study
  Country: US (occurrence: None)
  Receive Date: 20220615
  Receipt Date: 20220927
  Transmission Date: 20221027
  Serious: Yes (Life-Threatening, Hospitalization)
  Sender: FDA-Public Use
  Company Number: US-Eisai Medical Research-EC-2022-116812

PATIENT
  Age: 60 Year
  Sex: Male
  Weight: 74.12 kg

DRUGS (11)
  1. LENVATINIB [Suspect]
     Active Substance: LENVATINIB
     Indication: Colorectal cancer
     Dosage: STARTING DOSE 20 MG, FLUCTUATED DOSAGE
     Route: 048
     Dates: start: 20211025, end: 20220603
  2. PEMBROLIZUMAB [Suspect]
     Active Substance: PEMBROLIZUMAB
     Indication: Colorectal cancer
     Route: 041
     Dates: start: 20211025, end: 20220524
  3. PEMBROLIZUMAB [Suspect]
     Active Substance: PEMBROLIZUMAB
     Route: 041
     Dates: start: 20220705
  4. FAVEZELIMAB [Suspect]
     Active Substance: FAVEZELIMAB
     Indication: Colorectal cancer
     Route: 042
     Dates: start: 20211025, end: 20220524
  5. FAVEZELIMAB [Suspect]
     Active Substance: FAVEZELIMAB
     Route: 042
     Dates: start: 20220705
  6. ADVIL [Suspect]
     Active Substance: IBUPROFEN
     Indication: Abdominal pain
     Route: 048
     Dates: start: 20220101, end: 20220104
  7. ALEVE [Suspect]
     Active Substance: NAPROXEN SODIUM
     Indication: Abdominal pain
     Route: 048
     Dates: start: 20220101, end: 20220104
  8. NORVASC [Concomitant]
     Active Substance: AMLODIPINE BESYLATE
     Dates: start: 20211116
  9. LEVOTHYROXINE SODIUM [Concomitant]
     Active Substance: LEVOTHYROXINE SODIUM
     Dates: start: 20220215
  10. ONDANSETRON [Concomitant]
     Active Substance: ONDANSETRON
     Dates: start: 20220604, end: 20220604
  11. NITROGLYCERIN [Concomitant]
     Active Substance: NITROGLYCERIN
     Dates: start: 20220604, end: 20220604

REACTIONS (1)
  - Gastric ulcer perforation [Recovered/Resolved]

NARRATIVE: CASE EVENT DATE: 20220604
